FAERS Safety Report 5542413-0 (Version None)
Quarter: 2007Q4

REPORT INFORMATION
  Report Type: 
  Country: None (occurrence: None)
  Receive Date: 20071129
  Receipt Date: 20070731
  Transmission Date: 20080405
  Serious: Yes (Hospitalization)
  Sender: FDA-Public Use
  Company Number: US200706000349

PATIENT
  Age: 52 Year
  Sex: Female
  Weight: 76.6 kg

DRUGS (10)
  1. ZYPREXA [Suspect]
     Indication: SCHIZOAFFECTIVE DISORDER
     Dosage: 20 MG, EACH EVENING, ORAL
     Route: 048
     Dates: start: 20060601
  2. LEXAPRO [Concomitant]
  3. TRAZODONE HCL [Concomitant]
  4. ABILIFY [Concomitant]
  5. ASPIRIN [Concomitant]
  6. HYDRALAZINE [Concomitant]
  7. EFFEXOR XR [Concomitant]
  8. RELAFEN [Concomitant]
  9. SYNTHROID [Concomitant]
  10. FLOVENT [Concomitant]

REACTIONS (3)
  - CHOLELITHIASIS [None]
  - PANCREATITIS ACUTE [None]
  - PEPTIC ULCER [None]
